FAERS Safety Report 24000511 (Version 1)
Quarter: 2024Q2

REPORT INFORMATION
  Report Type: Spontaneous
  Country: FR (occurrence: FR)
  Receive Date: 20240621
  Receipt Date: 20240621
  Transmission Date: 20240715
  Serious: Yes (Life-Threatening)
  Sender: FDA-Public Use
  Company Number: None

PATIENT
  Age: 72 Year
  Sex: Male
  Weight: 88 kg

DRUGS (5)
  1. PROPOFOL [Suspect]
     Active Substance: PROPOFOL
     Indication: Induction of anaesthesia
     Dosage: UNKNOWN DOSAGE?ROUTE OF ADMIN: INTRAVENOUS
     Dates: start: 20240215, end: 20240215
  2. SUFENTANIL CITRATE [Suspect]
     Active Substance: SUFENTANIL CITRATE
     Indication: Induction of anaesthesia
     Dosage: UNKNOWN DOSE?ROA: INTRAVENOUS
     Dates: start: 20240215, end: 20240215
  3. DEXAMETHASONE SODIUM PHOSPHATE [Suspect]
     Active Substance: DEXAMETHASONE PHOSPHATE\DEXAMETHASONE SODIUM PHOSPHATE
     Indication: Induction of anaesthesia
     Dosage: UNKNOWN DOSE?ROA: INTRAVENOUS
     Dates: start: 20240215, end: 20240215
  4. KETAMINE HYDROCHLORIDE [Suspect]
     Active Substance: KETAMINE HYDROCHLORIDE
     Indication: Induction of anaesthesia
     Dosage: UNKNOWN DOSE?ROA: INTRAVENOUS
     Dates: start: 20240215, end: 20240215
  5. CEFAZOLIN SODIUM [Suspect]
     Active Substance: CEFAZOLIN SODIUM
     Indication: Antibiotic prophylaxis
     Dosage: 100 MG?ROA: INTRAVENOUS?DOSAGE FORM: 1FP
     Dates: start: 20240215, end: 20240215

REACTIONS (1)
  - Anaphylactic shock [Recovered/Resolved]

NARRATIVE: CASE EVENT DATE: 20240215
